FAERS Safety Report 6378113-7 (Version None)
Quarter: 2009Q3

REPORT INFORMATION
  Report Type: 
  Country: None (occurrence: None)
  Receive Date: 20090925
  Receipt Date: 20090922
  Transmission Date: 20100115
  Serious: Yes (Hospitalization, Other)
  Sender: FDA-Public Use
  Company Number: US-MERCK-0811USA04249

PATIENT
  Age: 57 Year
  Sex: Female

DRUGS (2)
  1. FOSAMAX [Suspect]
     Indication: OSTEOPOROSIS
     Route: 048
     Dates: start: 19981209
  2. FOSAMAX [Suspect]
     Route: 048
     Dates: start: 20020503, end: 20070101

REACTIONS (25)
  - ANXIETY [None]
  - ASTHENIA [None]
  - BLADDER PROLAPSE [None]
  - BLISTER [None]
  - BRONCHITIS [None]
  - CEREBROVASCULAR ACCIDENT [None]
  - CHEST PAIN [None]
  - DENTAL CARIES [None]
  - DEPRESSION [None]
  - DYSPNOEA [None]
  - FATIGUE [None]
  - INFLAMMATION [None]
  - JAW CYST [None]
  - LOOSE TOOTH [None]
  - MASTICATION DISORDER [None]
  - MYALGIA [None]
  - ORAL DISORDER [None]
  - OSTEONECROSIS [None]
  - PAIN [None]
  - RESORPTION BONE INCREASED [None]
  - STRESS [None]
  - TOOTH DISORDER [None]
  - TOOTH INFECTION [None]
  - TOOTH LOSS [None]
  - VIRAL INFECTION [None]
